FAERS Safety Report 18661534 (Version 1)
Quarter: 2020Q4

REPORT INFORMATION
  Report Type: Report from Study
  Country: JP (occurrence: JP)
  Receive Date: 20201224
  Receipt Date: 20201224
  Transmission Date: 20210114
  Serious: Yes (Hospitalization)
  Sender: FDA-Public Use
  Company Number: PHBS1999JP09947

PATIENT
  Age: 68 Year
  Sex: Male
  Weight: 61 kg

DRUGS (3)
  1. MDT COMBI MB [RIFAMPICIN] [Suspect]
     Active Substance: RIFAMPIN
  2. MDT COMBI MB [CLOFAZIMINE] [Suspect]
     Active Substance: CLOFAZIMINE
     Indication: BORDERLINE LEPROSY
     Dosage: CLOFAZIME: 50 MG, DAPSONE: 75 MG, RIFAMPICIN: 450 MG QW
     Route: 048
     Dates: start: 19990107, end: 19990419
  3. MDT COMBI MB [DAPSONE] [Suspect]
     Active Substance: DAPSONE
     Dosage: CLOFAZIME: 100 MG, DAPSONE: 50 MG , RIFAMPICIN: UNK
     Route: 048
     Dates: start: 19990420, end: 19990906

REACTIONS (11)
  - Insomnia [Recovering/Resolving]
  - Blood lactate dehydrogenase decreased [Recovered/Resolved]
  - High density lipoprotein decreased [Recovered/Resolved]
  - Malaise [Recovering/Resolving]
  - Protein total decreased [Recovered/Resolved]
  - Platelet count decreased [Recovered/Resolved]
  - Constipation [Recovering/Resolving]
  - Haemoglobin decreased [Recovered/Resolved]
  - Haematocrit decreased [Recovered/Resolved]
  - Anaemia [Recovered/Resolved]
  - Red blood cell count decreased [Recovered/Resolved]

NARRATIVE: CASE EVENT DATE: 19990420
